FAERS Safety Report 10729001 (Version 6)
Quarter: 2015Q3

REPORT INFORMATION
  Report Type: Spontaneous
  Country: US (occurrence: US)
  Receive Date: 20150122
  Receipt Date: 20150701
  Transmission Date: 20151125
  Serious: No
  Sender: FDA-Public Use
  Company Number: US-PFIZER INC-2015020936

PATIENT
  Age: 55 Year
  Sex: Female
  Weight: 109 kg

DRUGS (22)
  1. LYRICA [Suspect]
     Active Substance: PREGABALIN
     Indication: DIABETIC NEUROPATHY
     Dosage: UNK
     Route: 048
     Dates: start: 201411
  2. NORTRIPTYLINE [Concomitant]
     Active Substance: NORTRIPTYLINE
     Indication: SLEEP DISORDER
     Dosage: 75 MG, 1X/DAY (25 MG, 3 AT BEDTIME)
  3. FUROSEMIDE. [Concomitant]
     Active Substance: FUROSEMIDE
     Indication: FLUID RETENTION
     Dosage: 40 MG, 1X/DAY
     Dates: start: 1993
  4. LYRICA [Suspect]
     Active Substance: PREGABALIN
     Indication: FIBROMYALGIA
     Dosage: 300 MG, 2X/DAY
     Route: 048
     Dates: start: 20141101, end: 201501
  5. LYRICA [Suspect]
     Active Substance: PREGABALIN
     Dosage: 150 MG, DAILY
     Route: 048
     Dates: start: 201501
  6. LYRICA [Suspect]
     Active Substance: PREGABALIN
     Dosage: 150 MG, 4X/DAY
     Dates: start: 201503
  7. LYRICA [Suspect]
     Active Substance: PREGABALIN
     Dosage: 150 MG, 5X/DAY
     Route: 048
  8. MIRTAZAPINE. [Concomitant]
     Active Substance: MIRTAZAPINE
     Indication: SLEEP DISORDER
     Dosage: 30MG, 1.5 TABLET AT BEDTIME
     Route: 048
     Dates: start: 2005
  9. SIMVASTATIN. [Concomitant]
     Active Substance: SIMVASTATIN
     Dosage: UNK
     Dates: start: 2013
  10. DICYCLOMINE [Concomitant]
     Active Substance: DICYCLOMINE HYDROCHLORIDE
     Indication: GASTROINTESTINAL PAIN
     Dosage: 10 MG, 2 FOUR TIMES DAILY AS NEEDED
     Dates: start: 2013
  11. MELOXICAM. [Concomitant]
     Active Substance: MELOXICAM
     Indication: PAIN
     Dosage: 15 MG, ONE AS NEEDED
     Route: 048
  12. MONTELUKAST [Concomitant]
     Active Substance: MONTELUKAST SODIUM
     Indication: NOCTURNAL DYSPNOEA
     Dosage: 10 MG, ONE AT BEDTIME
     Dates: start: 2004
  13. METFORMIN [Concomitant]
     Active Substance: METFORMIN HYDROCHLORIDE
     Indication: DIABETES MELLITUS
     Dosage: 500 MG, 2X/DAY
     Dates: start: 2013
  14. LOXAPINE. [Concomitant]
     Active Substance: LOXAPINE
     Indication: AFFECTIVE DISORDER
     Dosage: 10 MG, THREE AT BEDTIME
     Dates: start: 2004
  15. LOXAPINE. [Concomitant]
     Active Substance: LOXAPINE
     Dosage: UNK
     Dates: start: 2004, end: 201505
  16. OMEPRAZOLE. [Concomitant]
     Active Substance: OMEPRAZOLE
     Indication: ABDOMINAL DISCOMFORT
     Dosage: 20 MG, 2X/DAY
     Route: 048
  17. LEVOTHYROXINE. [Concomitant]
     Active Substance: LEVOTHYROXINE
     Dosage: 0.15 ?G, 1X/DAY
     Route: 048
     Dates: start: 1994
  18. LYRICA [Suspect]
     Active Substance: PREGABALIN
     Dosage: 150 MG, 2X/DAY
     Route: 048
  19. LYRICA [Suspect]
     Active Substance: PREGABALIN
     Dosage: 300 MG, 2X/DAY
     Dates: start: 201503
  20. SIMVASTATIN. [Concomitant]
     Active Substance: SIMVASTATIN
     Indication: BLOOD CHOLESTEROL ABNORMAL
     Dosage: 20 MG, ONE IN THE EVENING
  21. POTASSIUM [Concomitant]
     Active Substance: POTASSIUM
     Dosage: 750 MG, ONCE DAILY
     Route: 048
     Dates: start: 1993
  22. CITALOPRAM [Concomitant]
     Active Substance: CITALOPRAM HYDROBROMIDE
     Indication: DEPRESSION
     Dosage: 40MG ONCE AND HALF TABLET IN THE MORNING
     Route: 048
     Dates: start: 2000

REACTIONS (7)
  - Intentional product misuse [Recovered/Resolved]
  - Impaired work ability [Recovered/Resolved]
  - Gait disturbance [Recovered/Resolved]
  - Drug withdrawal syndrome [Recovered/Resolved]
  - Lethargy [Recovered/Resolved]
  - Laryngitis [Recovered/Resolved]
  - Drug ineffective [Recovered/Resolved]

NARRATIVE: CASE EVENT DATE: 20150112
